FAERS Safety Report 16508848 (Version 2)
Quarter: 2019Q3

REPORT INFORMATION
  Report Type: Report from Study
  Country: US (occurrence: US)
  Receive Date: 20190702
  Receipt Date: 20190820
  Transmission Date: 20191004
  Serious: No
  Sender: FDA-Public Use
  Company Number: US-SHIRE-US201921195

PATIENT
  Sex: Female

DRUGS (2)
  1. MOTEGRITY [Suspect]
     Active Substance: PRUCALOPRIDE SUCCINATE
     Dosage: 02 MILLIGRAM, 2X/DAY:BID
     Route: 065
     Dates: start: 20190802
  2. MOTEGRITY [Suspect]
     Active Substance: PRUCALOPRIDE SUCCINATE
     Indication: CONSTIPATION
     Dosage: 2 MILLIGRAM
     Route: 065
     Dates: start: 20190626, end: 20190626

REACTIONS (4)
  - Headache [Unknown]
  - Diarrhoea [Unknown]
  - Off label use [Unknown]
  - Hunger [Unknown]
